FAERS Safety Report 7368566-X (Version None)
Quarter: 2011Q1

REPORT INFORMATION
  Report Type: 
  Country: None (occurrence: None)
  Receive Date: 20110323
  Receipt Date: 20110314
  Transmission Date: 20110831
  Serious: Yes (Death)
  Sender: FDA-Public Use
  Company Number: GB-JNJFOC-20081103425

PATIENT
  Age: 74 Year
  Sex: Male

DRUGS (8)
  1. OMEPRAZOLE [Suspect]
     Indication: ILL-DEFINED DISORDER
     Route: 048
  2. AMLODIPINE [Suspect]
     Indication: ILL-DEFINED DISORDER
     Route: 048
  3. LEVOTHYROXINE SODIUM [Concomitant]
  4. SIMVASTATIN [Suspect]
     Indication: ILL-DEFINED DISORDER
     Route: 048
  5. PERINDOPRIL ERBUMINE [Suspect]
     Indication: ILL-DEFINED DISORDER
     Route: 048
  6. ASPIRIN [Suspect]
     Indication: ILL-DEFINED DISORDER
     Route: 048
  7. AMOXICILLIN [Concomitant]
  8. IBUPROFEN [Suspect]
     Indication: ILL-DEFINED DISORDER
     Route: 048

REACTIONS (13)
  - DERMATOMYOSITIS [None]
  - ALVEOLITIS [None]
  - RESPIRATORY FAILURE [None]
  - DECREASED APPETITE [None]
  - ACUTE RESPIRATORY DISTRESS SYNDROME [None]
  - RENAL FAILURE ACUTE [None]
  - HAEMOPTYSIS [None]
  - WEIGHT DECREASED [None]
  - OROPHARYNGEAL PAIN [None]
  - COUGH [None]
  - RASH [None]
  - MUSCULAR WEAKNESS [None]
  - LOWER RESPIRATORY TRACT INFECTION [None]
